FAERS Safety Report 22707379 (Version 2)
Quarter: 2023Q4

REPORT INFORMATION
  Report Type: Spontaneous
  Country: JP (occurrence: JP)
  Receive Date: 20230714
  Receipt Date: 20231004
  Transmission Date: 20240110
  Serious: Yes (Death, Life-Threatening)
  Sender: FDA-Public Use
  Company Number: JP-Eisai-202304148_LEN_P_1

PATIENT
  Age: 79 Year
  Sex: Male

DRUGS (4)
  1. LENVATINIB [Suspect]
     Active Substance: LENVATINIB
     Indication: Papillary thyroid cancer
     Route: 048
  2. LENVATINIB [Suspect]
     Active Substance: LENVATINIB
     Dosage: EVERY OTHER DAY
     Route: 048
  3. LENVATINIB [Suspect]
     Active Substance: LENVATINIB
     Dosage: EVERY OTHER DAY
     Route: 048
  4. LENVATINIB [Suspect]
     Active Substance: LENVATINIB
     Route: 048

REACTIONS (5)
  - Aortic aneurysm [Fatal]
  - Aortic aneurysm rupture [Fatal]
  - Proteinuria [Unknown]
  - Palmar-plantar erythrodysaesthesia syndrome [Unknown]
  - Hypertension [Unknown]
